FAERS Safety Report 9966939 (Version 2)
Quarter: 2014Q1

REPORT INFORMATION
  Report Type: Spontaneous
  Country: US (occurrence: US)
  Receive Date: 20140305
  Receipt Date: 20140305
  Transmission Date: 20141002
  Serious: Yes (Other)
  Sender: FDA-Public Use
  Company Number: US-GE HEALTHCARE MEDICAL DIAGNOSTICS-OSCN-PR-0805S-0276

PATIENT
  Age: 59 Year
  Sex: Female

DRUGS (3)
  1. OMNISCAN [Suspect]
     Indication: SKIN ULCER
     Route: 042
     Dates: start: 20060726, end: 20060726
  2. OMNISCAN [Suspect]
     Indication: GANGRENE
     Route: 042
     Dates: start: 20060807, end: 20060807
  3. OMNISCAN [Suspect]
     Indication: CATHETERISATION CARDIAC
     Route: 042
     Dates: start: 20060809, end: 20060809

REACTIONS (1)
  - Nephrogenic systemic fibrosis [Not Recovered/Not Resolved]
